FAERS Safety Report 25181661 (Version 1)
Quarter: 2025Q2

REPORT INFORMATION
  Report Type: Spontaneous
  Country: ES (occurrence: ES)
  Receive Date: 20250410
  Receipt Date: 20250410
  Transmission Date: 20250717
  Serious: Yes (Hospitalization)
  Sender: TEVA
  Company Number: None

PATIENT
  Age: 31 Year
  Sex: Female

DRUGS (4)
  1. OMEPRAZOLE [Interacting]
     Active Substance: OMEPRAZOLE
     Indication: Gastrointestinal disorder prophylaxis
     Dosage: OMEPRAZOLE SODIUM (2141SO)
     Route: 048
     Dates: start: 20240920, end: 20241002
  2. DEXKETOPROFEN [Interacting]
     Active Substance: DEXKETOPROFEN
     Indication: Pain
     Dosage: DEXKETOPROFENO TROMETAMOL (7312TJ)
     Route: 042
     Dates: start: 20240922, end: 20240928
  3. METAMIZOL SODIUM [Interacting]
     Active Substance: METAMIZOL SODIUM
     Indication: Pain
     Dosage: METAMIZOL SODIUM (111SO)
     Route: 042
     Dates: start: 20240920, end: 20240921
  4. PIPERACILLIN SODIUM\TAZOBACTAM SODIUM [Interacting]
     Active Substance: PIPERACILLIN SODIUM\TAZOBACTAM SODIUM
     Indication: Pyelonephritis acute
     Route: 042
     Dates: start: 20240919, end: 20241001

REACTIONS (1)
  - Tubulointerstitial nephritis [Recovering/Resolving]

NARRATIVE: CASE EVENT DATE: 20240922
